FAERS Safety Report 7927209 (Version 6)
Quarter: 2013Q2

REPORT INFORMATION
  Report Type: Report from Study
  Country: JP (occurrence: JP)
  Receive Date: 20110502
  Receipt Date: 20130603
  Transmission Date: 20140414
  Serious: Yes (Hospitalization)
  Sender: FDA-Public Use
  Company Number: JP-ROCHE-773669

PATIENT
  Age: 2 Year
  Sex: Female

DRUGS (55)
  1. TOCILIZUMAB [Suspect]
     Indication: JUVENILE IDIOPATHIC ARTHRITIS
     Route: 041
     Dates: start: 20110121, end: 20110128
  2. TOCILIZUMAB [Suspect]
     Indication: JUVENILE IDIOPATHIC ARTHRITIS
     Route: 041
     Dates: start: 20110204, end: 20110204
  3. TOCILIZUMAB [Suspect]
     Indication: JUVENILE IDIOPATHIC ARTHRITIS
     Route: 041
     Dates: start: 20110210, end: 20110404
  4. TOCILIZUMAB [Suspect]
     Indication: JUVENILE IDIOPATHIC ARTHRITIS
     Route: 041
     Dates: start: 20110411, end: 20110518
  5. TOCILIZUMAB [Suspect]
     Indication: JUVENILE IDIOPATHIC ARTHRITIS
     Route: 041
     Dates: start: 20110601, end: 20110714
  6. TOCILIZUMAB [Suspect]
     Indication: JUVENILE IDIOPATHIC ARTHRITIS
     Route: 041
     Dates: start: 20110728, end: 20110811
  7. TOCILIZUMAB [Suspect]
     Indication: JUVENILE IDIOPATHIC ARTHRITIS
     Route: 041
     Dates: start: 20110825, end: 20110922
  8. TOCILIZUMAB [Suspect]
     Indication: JUVENILE IDIOPATHIC ARTHRITIS
     Route: 041
     Dates: start: 20111007, end: 20111104
  9. TOCILIZUMAB [Suspect]
     Indication: JUVENILE IDIOPATHIC ARTHRITIS
     Route: 041
     Dates: start: 20111118, end: 20111202
  10. TOCILIZUMAB [Suspect]
     Indication: JUVENILE IDIOPATHIC ARTHRITIS
     Route: 041
  11. PREDNISOLONE [Suspect]
     Indication: JUVENILE IDIOPATHIC ARTHRITIS
     Route: 048
     Dates: start: 20110301, end: 20110316
  12. PREDNISOLONE [Suspect]
     Indication: JUVENILE IDIOPATHIC ARTHRITIS
     Route: 048
     Dates: start: 20110317, end: 20110325
  13. PREDNISOLONE [Suspect]
     Indication: JUVENILE IDIOPATHIC ARTHRITIS
     Route: 048
     Dates: start: 20110326, end: 20110329
  14. PREDNISOLONE [Suspect]
     Indication: JUVENILE IDIOPATHIC ARTHRITIS
     Route: 048
     Dates: start: 20110330, end: 20110404
  15. PREDNISOLONE [Suspect]
     Indication: JUVENILE IDIOPATHIC ARTHRITIS
     Route: 048
     Dates: start: 20110405, end: 20110411
  16. PREDNISOLONE [Suspect]
     Indication: JUVENILE IDIOPATHIC ARTHRITIS
     Route: 048
     Dates: start: 20110412, end: 20110418
  17. PREDNISOLONE [Suspect]
     Indication: JUVENILE IDIOPATHIC ARTHRITIS
     Route: 048
     Dates: start: 20110419, end: 20110425
  18. PREDNISOLONE [Suspect]
     Indication: JUVENILE IDIOPATHIC ARTHRITIS
     Route: 048
     Dates: start: 20110426, end: 20110509
  19. PREDNISOLONE [Suspect]
     Indication: JUVENILE IDIOPATHIC ARTHRITIS
     Route: 048
     Dates: start: 20110510, end: 20110616
  20. PREDNISOLONE [Suspect]
     Indication: JUVENILE IDIOPATHIC ARTHRITIS
     Route: 048
     Dates: start: 20110617, end: 20110714
  21. PREDNISOLONE [Suspect]
     Indication: JUVENILE IDIOPATHIC ARTHRITIS
     Route: 048
     Dates: start: 20110715, end: 20110728
  22. PREDNISOLONE [Suspect]
     Indication: JUVENILE IDIOPATHIC ARTHRITIS
     Route: 048
     Dates: start: 20110729, end: 20110811
  23. PREDNISOLONE [Suspect]
     Indication: JUVENILE IDIOPATHIC ARTHRITIS
     Route: 048
     Dates: start: 20110812, end: 20110825
  24. PREDNISOLONE [Suspect]
     Indication: JUVENILE IDIOPATHIC ARTHRITIS
     Route: 048
     Dates: start: 20110826, end: 20110909
  25. PREDNISOLONE [Suspect]
     Indication: JUVENILE IDIOPATHIC ARTHRITIS
     Route: 048
     Dates: start: 20110910, end: 20120210
  26. PREDNISOLONE [Suspect]
     Indication: JUVENILE IDIOPATHIC ARTHRITIS
     Route: 048
     Dates: start: 20120211, end: 20120309
  27. PREDNISOLONE [Suspect]
     Indication: JUVENILE IDIOPATHIC ARTHRITIS
     Route: 048
     Dates: start: 20120310
  28. LIMETHASON [Concomitant]
     Indication: JUVENILE IDIOPATHIC ARTHRITIS
     Route: 041
     Dates: start: 20101223, end: 20110104
  29. LIMETHASON [Concomitant]
     Indication: JUVENILE IDIOPATHIC ARTHRITIS
     Route: 041
     Dates: start: 20110109, end: 20110203
  30. LIMETHASON [Concomitant]
     Indication: JUVENILE IDIOPATHIC ARTHRITIS
     Route: 041
     Dates: start: 20110204, end: 20110228
  31. DIAMOX [Concomitant]
     Indication: GLAUCOMA
     Route: 048
  32. BRUFEN [Concomitant]
     Indication: JUVENILE IDIOPATHIC ARTHRITIS
     Route: 048
     Dates: start: 20101216, end: 20110427
  33. BRUFEN [Concomitant]
     Indication: JUVENILE IDIOPATHIC ARTHRITIS
     Route: 048
     Dates: start: 20110428, end: 20110502
  34. BRUFEN [Concomitant]
     Indication: JUVENILE IDIOPATHIC ARTHRITIS
     Route: 048
     Dates: start: 20110503, end: 20110507
  35. CARTEOLOL HCL [Concomitant]
     Dosage: DOSAGE IS UNCERTAIN.
     Route: 047
     Dates: start: 20110108
  36. LATANOPROST [Concomitant]
     Indication: GLAUCOMA
     Dosage: DOSAGE IS UNCERTAIN.
     Route: 047
     Dates: start: 20110108
  37. TRUSOPT [Concomitant]
     Indication: GLAUCOMA
     Dosage: DOSAGE IS UNCERTAIN.
     Route: 047
     Dates: start: 20110108
  38. FAMOTIDINE [Concomitant]
     Indication: PROPHYLAXIS
     Route: 048
     Dates: start: 20101208
  39. GLUCONSAN K [Concomitant]
     Route: 048
     Dates: start: 20110210, end: 2011
  40. GLUCONSAN K [Concomitant]
     Route: 048
     Dates: start: 2011, end: 20110928
  41. GLUCONSAN K [Concomitant]
     Route: 048
     Dates: start: 20110929
  42. MIYA BM [Concomitant]
     Indication: PROPHYLAXIS
     Route: 048
     Dates: start: 20110215
  43. POLARAMINE [Concomitant]
     Indication: PROPHYLAXIS
     Route: 048
     Dates: start: 20110216, end: 20110219
  44. DIPIVEFRIN HYDROCHLORIDE [Concomitant]
     Indication: PROPHYLAXIS
     Dosage: DOSAGE IS UNCERTAIN.
     Route: 047
     Dates: start: 20110303
  45. ALFACALCIDOL [Concomitant]
     Indication: PROPHYLAXIS
     Route: 048
     Dates: start: 20110311
  46. ACTONEL [Concomitant]
     Indication: PROPHYLAXIS
     Route: 048
     Dates: start: 20110311
  47. FERROMIA [Concomitant]
     Indication: PROPHYLAXIS
     Route: 048
     Dates: start: 20110418
  48. BIOFERMIN [Concomitant]
     Route: 048
  49. ASPIRIN [Concomitant]
     Indication: JUVENILE IDIOPATHIC ARTHRITIS
     Route: 048
     Dates: start: 20101208, end: 20101215
  50. PREDONINE [Concomitant]
     Indication: JUVENILE IDIOPATHIC ARTHRITIS
     Route: 042
     Dates: start: 20101210, end: 20101221
  51. PREDONINE [Concomitant]
     Indication: JUVENILE IDIOPATHIC ARTHRITIS
     Route: 042
     Dates: start: 20110104, end: 20110106
  52. SOLU-MEDROL [Concomitant]
     Indication: JUVENILE IDIOPATHIC ARTHRITIS
     Route: 042
     Dates: start: 20101221, end: 20101223
  53. SOLU-MEDROL [Concomitant]
     Indication: JUVENILE IDIOPATHIC ARTHRITIS
     Route: 042
     Dates: start: 20110106, end: 20110108
  54. SANDIMMUN [Concomitant]
     Indication: JUVENILE IDIOPATHIC ARTHRITIS
     Route: 048
     Dates: start: 20101222, end: 20101227
  55. SANDIMMUN [Concomitant]
     Indication: JUVENILE IDIOPATHIC ARTHRITIS
     Route: 048
     Dates: start: 20101228, end: 20110105

REACTIONS (5)
  - C-reactive protein increased [Recovering/Resolving]
  - Infusion related reaction [Recovering/Resolving]
  - Enterocolitis bacterial [Recovered/Resolved]
  - Stress fracture [Recovering/Resolving]
  - Upper respiratory tract inflammation [Recovered/Resolved]
